FAERS Safety Report 6904770-X (Version None)
Quarter: 2010Q3

REPORT INFORMATION
  Report Type: 
  Country: None (occurrence: None)
  Receive Date: 20100804
  Receipt Date: 20090707
  Transmission Date: 20110219
  Serious: No
  Sender: FDA-Public Use
  Company Number: US-PFIZER INC-2009215153

PATIENT
  Sex: Male

DRUGS (1)
  1. LYRICA [Suspect]
     Indication: PAIN MANAGEMENT
     Dosage: UNK

REACTIONS (5)
  - DIZZINESS [None]
  - FALL [None]
  - HEADACHE [None]
  - NAUSEA [None]
  - PAIN [None]
